FAERS Safety Report 10420024 (Version 1)
Quarter: 2014Q3

REPORT INFORMATION
  Report Type: Spontaneous
  Country: US (occurrence: US)
  Receive Date: 20140829
  Receipt Date: 20140829
  Transmission Date: 20150326
  Serious: Yes (Hospitalization)
  Sender: FDA-Public Use
  Company Number: US-PFIZER INC-2014238322

PATIENT
  Age: 51 Year
  Sex: Female

DRUGS (1)
  1. PHENYTOIN. [Suspect]
     Active Substance: PHENYTOIN
     Dosage: UNK
     Route: 048

REACTIONS (8)
  - Anticonvulsant drug level increased [Recovered/Resolved]
  - Neurotoxicity [Unknown]
  - Hypotension [Unknown]
  - Cardiac arrest [Unknown]
  - Renal failure acute [Unknown]
  - Bradycardia [Unknown]
  - Overdose [Unknown]
  - Metabolic acidosis [Unknown]
